FAERS Safety Report 14975425 (Version 1)
Quarter: 2018Q2

REPORT INFORMATION
  Report Type: Report from Study
  Country: US (occurrence: US)
  Receive Date: 20180605
  Receipt Date: 20180605
  Transmission Date: 20180711
  Serious: Yes (Hospitalization, Other)
  Sender: FDA-Public Use
  Company Number: US-GILEAD-2018-0341974

PATIENT
  Age: 47 Year
  Sex: Female

DRUGS (1)
  1. EMTRICITABINE/TENOFOVIR DISOPROXIL FUMARATE [Suspect]
     Active Substance: EMTRICITABINE\TENOFOVIR DISOPROXIL FUMARATE
     Indication: PROPHYLAXIS AGAINST HIV INFECTION
     Dosage: 500 MG, QD
     Route: 048
     Dates: start: 201704

REACTIONS (8)
  - Asthma [Unknown]
  - Gastrointestinal hypomotility [Recovered/Resolved]
  - Influenza [Recovered/Resolved]
  - Product use issue [Not Recovered/Not Resolved]
  - Cholecystectomy [Recovered/Resolved]
  - Pharyngitis streptococcal [Recovered/Resolved]
  - Hypertension [Recovering/Resolving]
  - Pneumonia [Recovered/Resolved]

NARRATIVE: CASE EVENT DATE: 201712
